FAERS Safety Report 6380959-6 (Version None)
Quarter: 2009Q3

REPORT INFORMATION
  Report Type: 
  Country: None (occurrence: None)
  Receive Date: 20090929
  Receipt Date: 20090917
  Transmission Date: 20100115
  Serious: Yes (Other)
  Sender: FDA-Public Use
  Company Number: US-SANOFI-SYNTHELABO-A03200702181

PATIENT
  Age: 44 Year
  Sex: Male

DRUGS (4)
  1. ALLEGRA [Concomitant]
     Dosage: UNK
     Route: 048
  2. PROPULSID [Concomitant]
     Dosage: UNK
     Route: 065
  3. MECLIZINE [Concomitant]
     Dosage: UNK
     Route: 065
  4. AMBIEN [Suspect]
     Indication: SLEEP DISORDER
     Dosage: FROM 5 TO 25 MG HS PRN
     Route: 048
     Dates: start: 19970601, end: 19980101

REACTIONS (18)
  - ABNORMAL BEHAVIOUR [None]
  - AMNESIA [None]
  - DEPENDENCE [None]
  - DEPRESSION [None]
  - DRUG ABUSE [None]
  - DRUG TOLERANCE INCREASED [None]
  - DRUG WITHDRAWAL CONVULSIONS [None]
  - EATING DISORDER [None]
  - EUPHORIC MOOD [None]
  - FATIGUE [None]
  - ILL-DEFINED DISORDER [None]
  - IMPAIRED DRIVING ABILITY [None]
  - PAEDOPHILIA [None]
  - SOMNAMBULISM [None]
  - SOMNOLENCE [None]
  - THINKING ABNORMAL [None]
  - VOMITING [None]
  - WITHDRAWAL SYNDROME [None]
